FAERS Safety Report 8282186-4 (Version None)
Quarter: 2012Q2

REPORT INFORMATION
  Report Type: 
  Country: None (occurrence: None)
  Receive Date: 20120413
  Receipt Date: 20120403
  Transmission Date: 20120825
  Serious: Yes (Hospitalization, Other)
  Sender: FDA-Public Use
  Company Number: SE-BRISTOL-MYERS SQUIBB COMPANY-16501603

PATIENT
  Age: 77 Year
  Sex: Female
  Weight: 70 kg

DRUGS (2)
  1. IRBESARTAN [Suspect]
     Indication: HYPERTENSION
     Dosage: APROVEL TABS 450MG,450MG DAILY 5 YEARS AGO APROVEL TABS 75MG,75MG DAILY,
     Route: 048
  2. HYDROXOCOBALAMIN [Concomitant]

REACTIONS (5)
  - DRY THROAT [None]
  - DYSPNOEA [None]
  - NASAL DRYNESS [None]
  - PARAESTHESIA ORAL [None]
  - BRONCHIAL DISORDER [None]
